FAERS Safety Report 8177193 (Version 3)
Quarter: 2013Q1

REPORT INFORMATION
  Report Type: Report from Study
  Country: BR (occurrence: BR)
  Receive Date: 20111012
  Receipt Date: 20130103
  Transmission Date: 20140127
  Serious: Yes (Hospitalization, Other)
  Sender: FDA-Public Use
  Company Number: BR-ROCHE-718173

PATIENT
  Age: 59 None
  Sex: Female
  Weight: 61 kg

DRUGS (29)
  1. RITUXIMAB [Suspect]
     Indication: RHEUMATOID ARTHRITIS
     Dosage: STOP DATE: OCT 2009
     Route: 042
     Dates: start: 20091001, end: 200910
  2. RITUXIMAB [Suspect]
     Dosage: FORM: INFUSION
     Route: 042
     Dates: start: 20100705, end: 20100721
  3. RITUXIMAB [Suspect]
     Route: 065
  4. RITUXIMAB [Suspect]
     Route: 065
  5. RITUXIMAB [Suspect]
     Route: 065
  6. RITUXIMAB [Suspect]
     Route: 065
  7. TOCILIZUMAB [Suspect]
     Indication: RHEUMATOID ARTHRITIS
     Route: 042
  8. TOCILIZUMAB [Suspect]
     Route: 042
     Dates: start: 20110622, end: 201107
  9. PURAN T4 [Concomitant]
     Route: 065
  10. ATACAND [Concomitant]
     Dosage: DOSE: 16 MG+12.5 MG
     Route: 065
  11. VENLIFT [Concomitant]
     Route: 065
  12. CREON [Concomitant]
     Route: 065
  13. ATENOL [Concomitant]
     Route: 065
  14. METFORMIN [Concomitant]
     Route: 065
  15. METHOTREXATE [Concomitant]
     Route: 065
  16. FLORATIL [Concomitant]
  17. ACETYLCYSTEINE [Concomitant]
  18. ALDOMET [Concomitant]
     Route: 065
  19. NAPRIX [Concomitant]
     Route: 065
  20. NAPRIX [Concomitant]
     Route: 065
  21. NAPRIX [Concomitant]
     Dosage: DOSE REPORTED AS 80+ 12.5 MG
     Route: 065
  22. VEROTINA [Concomitant]
     Route: 065
  23. ADDERALL [Concomitant]
     Route: 065
  24. LEXOTAN [Concomitant]
  25. LISADOR [Concomitant]
  26. BENZETACIL [Concomitant]
     Route: 065
  27. MICARDIS [Concomitant]
     Dosage: DOSE: 80/12.5 MG
     Route: 065
  28. NISULID [Concomitant]
  29. HEDERA HELIX [Concomitant]

REACTIONS (30)
  - Depression [Recovered/Resolved]
  - Cardiac disorder [Not Recovered/Not Resolved]
  - Pericardial effusion [Unknown]
  - Disease progression [Recovered/Resolved]
  - Arteriosclerosis [Recovered/Resolved]
  - Blood pressure fluctuation [Recovered/Resolved]
  - Hypertension [Recovered/Resolved]
  - Malaise [Recovered/Resolved]
  - Tachycardia [Recovered/Resolved]
  - Insomnia [Recovered/Resolved]
  - Hyperhidrosis [Recovered/Resolved]
  - Somnolence [Recovered/Resolved]
  - Headache [Unknown]
  - Arthralgia [Not Recovered/Not Resolved]
  - Arthritis [Recovering/Resolving]
  - Joint effusion [Recovering/Resolving]
  - Nasopharyngitis [Not Recovered/Not Resolved]
  - Blood iron decreased [Recovered/Resolved]
  - Joint swelling [Recovering/Resolving]
  - Pain [Recovering/Resolving]
  - Cough [Unknown]
  - Nasopharyngitis [Unknown]
  - Sinusitis [Not Recovered/Not Resolved]
  - Swelling [Not Recovered/Not Resolved]
  - Pain [Not Recovered/Not Resolved]
  - Dysphonia [Not Recovered/Not Resolved]
  - Drug ineffective [Unknown]
  - Serositis [Recovered/Resolved]
  - Blood insulin [Not Recovered/Not Resolved]
  - Fatigue [Not Recovered/Not Resolved]
